FAERS Safety Report 7261562-2 (Version None)
Quarter: 2011Q1

REPORT INFORMATION
  Report Type: 
  Country: None (occurrence: None)
  Receive Date: 20110130
  Receipt Date: 20100930
  Transmission Date: 20110831
  Serious: No
  Sender: FDA-Public Use
  Company Number: US-ABBOTT-10P-163-0675220-00

PATIENT
  Age: 52 Year
  Sex: Female

DRUGS (4)
  1. METANX [Concomitant]
     Indication: NODULE
  2. HUMIRA [Suspect]
     Indication: RHEUMATOID ARTHRITIS
     Dates: start: 20060901, end: 20100906
  3. SYNTHROID [Concomitant]
     Indication: HYPOTHYROIDISM
  4. METANX [Concomitant]
     Indication: EPISTAXIS

REACTIONS (3)
  - TEARFULNESS [None]
  - PAIN [None]
  - FRUSTRATION [None]
